FAERS Safety Report 7230573-5 (Version None)
Quarter: 2011Q1

REPORT INFORMATION
  Report Type: 
  Country: None (occurrence: None)
  Receive Date: 20110118
  Receipt Date: 20110110
  Transmission Date: 20110831
  Serious: Yes (Other)
  Sender: FDA-Public Use
  Company Number: PHHY2010DE82126

PATIENT
  Age: 57 Year
  Sex: Male
  Weight: 84 kg

DRUGS (3)
  1. EXJADE [Suspect]
     Dosage: UNK
  2. EXJADE [Suspect]
     Indication: IRON OVERLOAD
     Dosage: 1500 MG
     Dates: start: 20090924, end: 20091015
  3. ERYPO [Concomitant]

REACTIONS (1)
  - TRANSIENT ISCHAEMIC ATTACK [None]
